FAERS Safety Report 4390781-8 (Version None)
Quarter: 2004Q3

REPORT INFORMATION
  Report Type: 
  Country: None (occurrence: None)
  Receive Date: 20040706
  Receipt Date: 20040706
  Transmission Date: 20050211
  Serious: Yes (Disabling)
  Sender: FDA-Public Use
  Company Number: None

PATIENT
  Age: 34 Year
  Sex: Male
  Weight: 63.5036 kg

DRUGS (1)
  1. ZICAM COLD REMEMDY SWABS ZICAM LLC [Suspect]
     Indication: NASOPHARYNGITIS
     Dosage: 1 SWAB 4 HOUR NASAL
     Route: 045
     Dates: start: 20040106, end: 20040108

REACTIONS (2)
  - AGEUSIA [None]
  - ANOSMIA [None]
